FAERS Safety Report 15564767 (Version 2)
Quarter: 2018Q4

REPORT INFORMATION
  Report Type: Spontaneous
  Country: US (occurrence: US)
  Receive Date: 20181030
  Receipt Date: 20181130
  Transmission Date: 20190205
  Serious: No
  Sender: FDA-Public Use
  Company Number: US-PFIZER INC-2018435031

PATIENT
  Age: 81 Year
  Sex: Male
  Weight: 68.95 kg

DRUGS (1)
  1. LATANOPROST. [Suspect]
     Active Substance: LATANOPROST
     Indication: GLAUCOMA
     Dosage: 125 UG, UNK

REACTIONS (2)
  - Eye irritation [Unknown]
  - Eye pruritus [Unknown]
